FAERS Safety Report 7781108-X (Version None)
Quarter: 2011Q3

REPORT INFORMATION
  Report Type: 
  Country: None (occurrence: None)
  Receive Date: 20110927
  Receipt Date: 20110922
  Transmission Date: 20111222
  Serious: Yes (Death)
  Sender: FDA-Public Use
  Company Number: PHHY2011MA84295

PATIENT
  Age: 62 Year
  Sex: Female
  Weight: 67 kg

DRUGS (3)
  1. FORLAX [Concomitant]
     Indication: CONSTIPATION
     Dosage: UNK UKN, UNK
  2. AMLODIPINE BESYLATE/VALSARTAN [Suspect]
     Indication: HYPERTENSION
     Dosage: 80 MG VALS AND 5 MG AMLO
     Route: 048
     Dates: start: 20090810
  3. TANAKAN [Concomitant]
     Indication: TINNITUS
     Dosage: UNK UKN, UNK

REACTIONS (2)
  - ISCHAEMIC STROKE [None]
  - ATROPHY [None]
